FAERS Safety Report 17817754 (Version 1)
Quarter: 2020Q2

REPORT INFORMATION
  Report Type: Spontaneous
  Country: CA (occurrence: CA)
  Receive Date: 20200522
  Receipt Date: 20200522
  Transmission Date: 20200714
  Serious: Yes (Death)
  Sender: FDA-Public Use
  Company Number: CA-TEVA-2020-CA-1238437

PATIENT
  Sex: Male

DRUGS (1)
  1. FLUDARABINE PHOSPHATE. [Suspect]
     Active Substance: FLUDARABINE PHOSPHATE
     Indication: CHEMOTHERAPY
     Route: 042

REACTIONS (4)
  - Stevens-Johnson syndrome [Fatal]
  - Neoplasm progression [Fatal]
  - Mucosal inflammation [Fatal]
  - Skin exfoliation [Fatal]
